FAERS Safety Report 10990676 (Version 1)
Quarter: 2015Q1

REPORT INFORMATION
  Report Type: Spontaneous
  Country: US (occurrence: None)
  Receive Date: 20150326
  Receipt Date: 20150326
  Transmission Date: 20150721
  Serious: Yes (Hospitalization)
  Sender: FDA-Public Use
  Company Number: 1000073788

PATIENT
  Sex: Female

DRUGS (1)
  1. LINZESS [Suspect]
     Active Substance: LINACLOTIDE
     Dosage: ONE-HALF 145 MCG CAPSULE DAILY MIXED WITH WATER; 1 IN 1 D
     Route: 048

REACTIONS (2)
  - Intentional product misuse [None]
  - Diarrhoea [None]
